FAERS Safety Report 5450614-5 (Version None)
Quarter: 2007Q3

REPORT INFORMATION
  Report Type: 
  Country: None (occurrence: None)
  Receive Date: 20070912
  Receipt Date: 20070910
  Transmission Date: 20080115
  Serious: Yes (Life-Threatening, Disabling)
  Sender: FDA-Public Use
  Company Number: GB-MERCK-0707GBR00068

PATIENT
  Age: 54 Year
  Sex: Female

DRUGS (25)
  1. ZOCOR [Suspect]
     Indication: BLOOD CHOLESTEROL INCREASED
     Route: 048
     Dates: start: 20070501, end: 20070612
  2. AMITRIPTYLINE HYDROCHLORIDE [Concomitant]
     Indication: PAIN
     Route: 065
  3. AMITRIPTYLINE HYDROCHLORIDE [Concomitant]
     Indication: SLEEP DISORDER
     Route: 065
  4. ASCORBIC ACID AND VITAMIN B COMPLEX [Concomitant]
     Indication: VITAMIN SUPPLEMENTATION
     Route: 065
  5. UBIDECARENONE [Concomitant]
     Route: 065
  6. ATROPINE SULFATE AND DIPHENOXYLATE HYDROCHLORIDE [Concomitant]
     Indication: IRRITABLE BOWEL SYNDROME
     Route: 065
  7. DIPHENOXYLATE HYDROCHLORIDE AND ATROPINE SULFATE [Concomitant]
     Indication: PAIN
     Route: 065
  8. ACETAMINOPHEN AND PROPOXYPHENE HYDROCHLORIDE [Concomitant]
     Indication: ANALGESIA
     Route: 065
  9. FUROSEMIDE [Concomitant]
     Indication: FLUID RETENTION
     Route: 065
  10. GINGER [Concomitant]
     Route: 065
  11. HYDROXOCOBALAMIN [Concomitant]
     Indication: VITAMIN B12 DEFICIENCY
     Route: 065
  12. MAGNESIUM (UNSPECIFIED) [Concomitant]
     Indication: CHRONIC FATIGUE SYNDROME
     Route: 065
  13. VITAMINS (UNSPECIFIED) [Concomitant]
     Indication: VITAMIN SUPPLEMENTATION
     Route: 065
  14. ACETAMINOPHEN [Concomitant]
     Indication: ANALGESIA
     Route: 065
  15. SELENIUM (UNSPECIFIED) [Concomitant]
     Indication: MEDICAL DIET
     Route: 065
  16. ALBUTEROL [Concomitant]
     Indication: ASTHMA
  17. NIACINAMIDE [Concomitant]
     Route: 065
  18. VITAMIN E [Concomitant]
     Route: 065
  19. ZINC (UNSPECIFIED) [Concomitant]
     Indication: MEDICAL DIET
     Route: 065
  20. CETYL MYRISTOLEATE AND CETYLATED FATTY ACIDS [Concomitant]
     Route: 065
  21. GLUCAMETACIN [Concomitant]
     Indication: ROUTINE HEALTH MAINTENANCE
     Route: 065
  22. GLUCAMETACIN [Concomitant]
     Indication: ARTHROPATHY
     Route: 065
  23. ASCORBIC ACID [Concomitant]
     Route: 065
  24. OMEGA-3 MARINE TRIGLYCERIDES [Concomitant]
     Indication: ARTHRALGIA
     Route: 065
  25. ACETAMINOPHEN [Concomitant]
     Route: 065

REACTIONS (3)
  - ANGIOEDEMA [None]
  - MYALGIA [None]
  - RHABDOMYOLYSIS [None]
